FAERS Safety Report 18807657 (Version 1)
Quarter: 2021Q1

REPORT INFORMATION
  Report Type: Spontaneous
  Country: US (occurrence: US)
  Receive Date: 20210128
  Receipt Date: 20210128
  Transmission Date: 20210419
  Serious: Yes (Hospitalization, Other)
  Sender: FDA-Public Use
  Company Number: None

PATIENT
  Sex: Female

DRUGS (24)
  1. TOBI PODHALER [Suspect]
     Active Substance: TOBRAMYCIN
     Indication: PSEUDOMONAS INFECTION
     Route: 055
     Dates: start: 20160719
  2. ALPRAZOLAM. [Concomitant]
     Active Substance: ALPRAZOLAM
  3. ESCITALOPRAM [Concomitant]
     Active Substance: ESCITALOPRAM OXALATE
  4. LORAZEPAM. [Concomitant]
     Active Substance: LORAZEPAM
  5. MONTELUKAST [Concomitant]
     Active Substance: MONTELUKAST SODIUM
  6. NORTRIPTYLIN [Concomitant]
     Active Substance: NORTRIPTYLINE
  7. OXYCODONE [Concomitant]
     Active Substance: OXYCODONE
  8. SMZ/TMP DS [Concomitant]
     Active Substance: SULFAMETHOXAZOLE\TRIMETHOPRIM
  9. AZITHROMYCIN ANHYDROUS. [Concomitant]
     Active Substance: AZITHROMYCIN ANHYDROUS
  10. AMOX/K CLAV [Concomitant]
     Active Substance: AMOXICILLIN\CLAVULANATE POTASSIUM
  11. EZETIMBE [Concomitant]
     Active Substance: EZETIMIBE
  12. GABAPENTIN. [Concomitant]
     Active Substance: GABAPENTIN
  13. ROSUVASTATIN. [Concomitant]
     Active Substance: ROSUVASTATIN
  14. SPIRIVA [Concomitant]
     Active Substance: TIOTROPIUM BROMIDE MONOHYDRATE
  15. PREDNISONE. [Concomitant]
     Active Substance: PREDNISONE
  16. FLUCONAZOLE. [Concomitant]
     Active Substance: FLUCONAZOLE
  17. HYDROCO/APAP [Concomitant]
     Active Substance: ACETAMINOPHEN\HYDROCODONE
  18. SYMBICORT [Concomitant]
     Active Substance: BUDESONIDE\FORMOTEROL FUMARATE DIHYDRATE
  19. ESTRA/NORETH [Concomitant]
  20. VALACYCLOVIR [Concomitant]
     Active Substance: VALACYCLOVIR HYDROCHLORIDE
  21. CIPROFLOXACN [Concomitant]
     Active Substance: CIPROFLOXACIN
  22. LIDOCAINE. [Concomitant]
     Active Substance: LIDOCAINE
  23. SSD CREAM [Concomitant]
     Active Substance: SILVER SULFADIAZINE
  24. SULFATRIM [Concomitant]
     Active Substance: SULFAMETHOXAZOLE\TRIMETHOPRIM

REACTIONS (2)
  - Cerebral disorder [None]
  - Pneumonia [None]
